FAERS Safety Report 17097846 (Version 1)
Quarter: 2019Q4

REPORT INFORMATION
  Report Type: Spontaneous
  Country: US (occurrence: US)
  Receive Date: 20191105
  Receipt Date: 20191105
  Transmission Date: 20200122
  Serious: Yes (Hospitalization)
  Sender: FDA-Public Use
  Company Number: None

PATIENT
  Age: 56 Year
  Sex: Female
  Weight: 73.94 kg

DRUGS (7)
  1. MULTIVITAMIN [Concomitant]
     Active Substance: VITAMINS
  2. SYNTHROID (175 MCG) ONCE DAILY [Concomitant]
  3. KLOR-CON (40 MG) ONCE DAILY [Concomitant]
  4. ACETAMINOPHEN ER 650 MG [Concomitant]
  5. CALCIUM TAB [Concomitant]
  6. OLUMIANT [Suspect]
     Active Substance: BARICITINIB
     Indication: RHEUMATOID ARTHRITIS
     Route: 048
     Dates: start: 20190615, end: 20190620
  7. HYDROCHLOROTHIAZIDE (25 MG) ONCE DAILY [Concomitant]

REACTIONS (1)
  - Gastric ulcer perforation [None]

NARRATIVE: CASE EVENT DATE: 20190621
